FAERS Safety Report 6040290-5 (Version None)
Quarter: 2009Q1

REPORT INFORMATION
  Report Type: 
  Country: None (occurrence: None)
  Receive Date: 20090116
  Receipt Date: 20080207
  Transmission Date: 20090719
  Serious: No
  Sender: FDA-Public Use
  Company Number: US-BRISTOL-MYERS SQUIBB COMPANY-14069017

PATIENT
  Age: 63 Year
  Sex: Male

DRUGS (5)
  1. ABILIFY [Suspect]
     Indication: DEMENTIA
  2. ABILIFY [Suspect]
     Indication: DEPRESSION
  3. EFFEXOR [Concomitant]
  4. ATIVAN [Concomitant]
  5. AMBIEN [Concomitant]

REACTIONS (1)
  - EXTRAPYRAMIDAL DISORDER [None]
